FAERS Safety Report 15854630 (Version 1)
Quarter: 2018Q4

REPORT INFORMATION
  Report Type: Spontaneous
  Country: US (occurrence: US)
  Receive Date: 20181227
  Receipt Date: 20181227
  Transmission Date: 20190205
  Serious: No
  Sender: FDA-Public Use
  Company Number: None

PATIENT
  Age: 59 Year
  Sex: Female

DRUGS (1)
  1. AFINITOR [Suspect]
     Active Substance: EVEROLIMUS
     Indication: MULTIPLE SCLEROSIS
     Route: 048
     Dates: start: 20181020

REACTIONS (3)
  - Ear pain [None]
  - Acne [None]
  - Pain [None]

NARRATIVE: CASE EVENT DATE: 20181201
